FAERS Safety Report 25891577 (Version 1)
Quarter: 2025Q4

REPORT INFORMATION
  Report Type: Spontaneous
  Country: US (occurrence: US)
  Receive Date: 20251007
  Receipt Date: 20251007
  Transmission Date: 20260118
  Serious: Yes (Other)
  Sender: BAYER HEALTHCARE LLC
  Company Number: US-BAYER-2025A128290

PATIENT
  Age: 43 Year
  Sex: Female

DRUGS (3)
  1. ASPIRIN [Suspect]
     Active Substance: ASPIRIN
     Dosage: 7 DF
     Dates: start: 20250909
  2. NURTEC ODT [Suspect]
     Active Substance: RIMEGEPANT SULFATE
     Dosage: UNK
     Route: 048
     Dates: start: 20250909
  3. TYLENOL [Suspect]
     Active Substance: ACETAMINOPHEN
     Dosage: UNK
     Dates: start: 20250909

REACTIONS (9)
  - Hypotension [None]
  - Dizziness [Unknown]
  - Somnolence [Unknown]
  - Pain in jaw [Unknown]
  - Confusional state [Unknown]
  - Asthenia [None]
  - Vomiting [None]
  - Feeding disorder [None]
  - Extra dose administered [None]

NARRATIVE: CASE EVENT DATE: 20250909
